FAERS Safety Report 7489663-4 (Version None)
Quarter: 2011Q2

REPORT INFORMATION
  Report Type: 
  Country: None (occurrence: None)
  Receive Date: 20110519
  Receipt Date: 20110512
  Transmission Date: 20111010
  Serious: No
  Sender: FDA-Public Use
  Company Number: US-BIOGENIDEC-2011BI013981

PATIENT
  Sex: Female

DRUGS (3)
  1. AVONEX [Concomitant]
     Indication: MULTIPLE SCLEROSIS
     Route: 030
  2. TYSABRI [Suspect]
     Indication: MULTIPLE SCLEROSIS
     Route: 042
     Dates: start: 20110307, end: 20110404
  3. TYSABRI [Suspect]
     Route: 042
     Dates: start: 20090304, end: 20090304

REACTIONS (7)
  - DYSPNOEA [None]
  - DIZZINESS [None]
  - FLUSHING [None]
  - FEELING ABNORMAL [None]
  - HEADACHE [None]
  - CHEST DISCOMFORT [None]
  - MULTIPLE SCLEROSIS RELAPSE [None]
